FAERS Safety Report 7582467-3 (Version None)
Quarter: 2011Q2

REPORT INFORMATION
  Report Type: 
  Country: None (occurrence: None)
  Receive Date: 20110630
  Receipt Date: 20110621
  Transmission Date: 20111010
  Serious: Yes (Hospitalization)
  Sender: FDA-Public Use
  Company Number: US-AMGEN-USACT2011031755

PATIENT
  Age: 57 Year

DRUGS (5)
  1. PEGFILGRASTIM [Suspect]
     Indication: UTERINE LEIOMYOSARCOMA
     Dosage: 6 MG, UNK
     Route: 058
     Dates: start: 20110330
  2. FILGRASTIM [Suspect]
     Indication: UTERINE LEIOMYOSARCOMA
     Dosage: 150 A?G/M2, UNK
     Dates: start: 20110330
  3. DOCETAXEL [Concomitant]
     Indication: UTERINE LEIOMYOSARCOMA
     Dosage: 75 MG/M2, UNK
     Route: 042
     Dates: start: 20110330
  4. GEMCITABINE [Concomitant]
     Indication: UTERINE LEIOMYOSARCOMA
     Dosage: 900 MG/M2, UNK
     Route: 042
     Dates: start: 20110330
  5. BEVACIZUMAB [Concomitant]
     Indication: UTERINE LEIOMYOSARCOMA
     Dosage: UNK UNK, BLINDED
     Route: 042
     Dates: start: 20110330

REACTIONS (2)
  - EMBOLISM [None]
  - PULMONARY EMBOLISM [None]
